FAERS Safety Report 20803513 (Version 1)
Quarter: 2022Q2

REPORT INFORMATION
  Report Type: Spontaneous
  Country: GB (occurrence: GB)
  Receive Date: 20220509
  Receipt Date: 20220509
  Transmission Date: 20220721
  Serious: Yes (Other)
  Sender: FDA-Public Use
  Company Number: GB-MHRA-MED-202205032219146930-EALXP

PATIENT
  Age: 37 Year
  Sex: Female

DRUGS (2)
  1. AZELASTINE [Suspect]
     Active Substance: AZELASTINE
     Indication: Chronic rhinosinusitis with nasal polyps
     Dosage: 1 DOSAGE FORM, BID
     Dates: start: 20220419
  2. FLUTICASONE [Suspect]
     Active Substance: FLUTICASONE
     Indication: Chronic rhinosinusitis with nasal polyps
     Dosage: 1 DOSAGE FORM, BID
     Dates: start: 20220419

REACTIONS (2)
  - Cluster headache [Recovered/Resolved]
  - Nausea [Unknown]

NARRATIVE: CASE EVENT DATE: 20220426
